FAERS Safety Report 8332429-3 (Version None)
Quarter: 2012Q2

REPORT INFORMATION
  Report Type: 
  Country: None (occurrence: None)
  Receive Date: 20120503
  Receipt Date: 20120423
  Transmission Date: 20120825
  Serious: Yes (Other)
  Sender: FDA-Public Use
  Company Number: US-BAYER-2012-027498

PATIENT
  Age: 30 Year
  Sex: Female
  Weight: 71.655 kg

DRUGS (1)
  1. MIRENA [Suspect]
     Indication: CONTRACEPTION
     Dosage: 20 MCG/24HR, CONT
     Route: 015
     Dates: start: 20110726, end: 20120122

REACTIONS (1)
  - ECTOPIC PREGNANCY WITH INTRAUTERINE DEVICE [None]
